FAERS Safety Report 18349211 (Version 2)
Quarter: 2020Q4

REPORT INFORMATION
  Report Type: Spontaneous
  Country: US (occurrence: US)
  Receive Date: 20201006
  Receipt Date: 20201013
  Transmission Date: 20210114
  Serious: No
  Sender: FDA-Public Use
  Company Number: US-MYLANLABS-2020M1083879

PATIENT
  Sex: Female
  Weight: 77 kg

DRUGS (2)
  1. PROMETRIUM [Concomitant]
     Active Substance: PROGESTERONE
     Dosage: UNK EVERY NIGHT
  2. ESTRADIOL TRANSDERMAL SYSTEM [Suspect]
     Active Substance: ESTRADIOL
     Indication: HORMONE REPLACEMENT THERAPY
     Dosage: 0.037 MILLIGRAM, QD
     Route: 062

REACTIONS (7)
  - Product adhesion issue [Not Recovered/Not Resolved]
  - Application site erythema [Recovered/Resolved]
  - Application site irritation [Unknown]
  - Application site burn [Unknown]
  - Application site erosion [Unknown]
  - Application site scab [Recovered/Resolved]
  - Product quality issue [Unknown]
